FAERS Safety Report 8325372-7 (Version None)
Quarter: 2012Q2

REPORT INFORMATION
  Report Type: 
  Country: None (occurrence: None)
  Receive Date: 20120501
  Receipt Date: 20100414
  Transmission Date: 20120825
  Serious: No
  Sender: FDA-Public Use
  Company Number: US-TEVA-2010002197

PATIENT

DRUGS (3)
  1. METHADONE HCL [Concomitant]
     Dosage: 60 MILLIGRAM;
  2. NUVIGIL [Suspect]
     Indication: SOMNOLENCE
     Route: 048
     Dates: start: 20100401
  3. METHADONE HCL [Concomitant]
     Dosage: 90 MILLIGRAM;

REACTIONS (5)
  - ARTHRALGIA [None]
  - HYPERAESTHESIA [None]
  - MYALGIA [None]
  - PAIN [None]
  - ORAL DISCOMFORT [None]
